FAERS Safety Report 6140581-3 (Version None)
Quarter: 2009Q1

REPORT INFORMATION
  Report Type: 
  Country: None (occurrence: None)
  Receive Date: 20090331
  Receipt Date: 20090317
  Transmission Date: 20090719
  Serious: Yes (Hospitalization, Other)
  Sender: FDA-Public Use
  Company Number: 2009SP006192

PATIENT
  Age: 39 Year
  Sex: Female

DRUGS (9)
  1. RIBAVIRIN [Suspect]
     Indication: HEPATITIS C
     Dosage: 800 MG; QD
  2. PEG-INTERFERON ALFA 2A (PEGINTERFERON ALFA 2A) [Suspect]
     Indication: HEPATITIS C
     Dosage: 180 MCG; QW; SC
     Route: 058
  3. EMTRICITABINE [Concomitant]
  4. TENOFOVIR [Concomitant]
  5. EFAVIRENZ [Concomitant]
  6. ATENOLOL [Concomitant]
  7. CITALOPRAM HYDROBROMIDE [Concomitant]
  8. UNSPECIFIED DRUG [Concomitant]
  9. LEVOTHYROXINE SODIUM [Concomitant]

REACTIONS (11)
  - AFFECT LABILITY [None]
  - BASEDOW'S DISEASE [None]
  - CEREBELLAR SYNDROME [None]
  - CHOREA [None]
  - DEPRESSION [None]
  - DYSTHYMIC DISORDER [None]
  - HYPOTHYROIDISM [None]
  - MUSCLE SPASTICITY [None]
  - NERVOUSNESS [None]
  - NEUROPATHY PERIPHERAL [None]
  - PYRAMIDAL TRACT SYNDROME [None]
